FAERS Safety Report 22906756 (Version 5)
Quarter: 2023Q4

REPORT INFORMATION
  Report Type: Report from Study
  Country: DE (occurrence: None)
  Receive Date: 20230905
  Receipt Date: 20231201
  Transmission Date: 20240110
  Serious: Yes (Hospitalization)
  Sender: FDA-Public Use
  Company Number: DE-ROCHE-3416194

PATIENT
  Age: 70 Year
  Sex: Male

DRUGS (6)
  1. ATEZOLIZUMAB [Suspect]
     Active Substance: ATEZOLIZUMAB
     Indication: Colorectal cancer
     Dosage: MOST RECENT DOSE OF ATEZOLIZUMAB PRIOR TO THE EVENT ONSET ON 07/AUG/2023
     Route: 041
     Dates: start: 20230807
  2. ZANZALINTINIB [Suspect]
     Active Substance: ZANZALINTINIB
     Indication: Colorectal cancer
     Dosage: MOST RECENT DOSE OF XL092 PRIOR TO THE EVENT ONSET ON 24/AUG/2023
     Route: 048
     Dates: start: 20230807
  3. EDOXABAN [Concomitant]
     Active Substance: EDOXABAN
     Dates: start: 20220101, end: 20230910
  4. LOPERAMIDE [Concomitant]
     Active Substance: LOPERAMIDE
     Dates: start: 20230905, end: 20230905
  5. PANTOZOL [Concomitant]
     Active Substance: PANTOPRAZOLE SODIUM
     Dates: start: 20220901
  6. RAMIPRIL [Concomitant]
     Active Substance: RAMIPRIL
     Dates: start: 20230807

REACTIONS (3)
  - Haemolysis [Recovered/Resolved]
  - Hyperbilirubinaemia [Not Recovered/Not Resolved]
  - Hepatorenal syndrome [Recovered/Resolved]

NARRATIVE: CASE EVENT DATE: 20230825
